FAERS Safety Report 6754294-8 (Version None)
Quarter: 2010Q2

REPORT INFORMATION
  Report Type: 
  Country: None (occurrence: None)
  Receive Date: 20100603
  Receipt Date: 20100520
  Transmission Date: 20101027
  Serious: Yes (Other)
  Sender: FDA-Public Use
  Company Number: US-JNJFOC-20100508796

PATIENT
  Age: 5 Year
  Sex: Male
  Weight: 23.59 kg

DRUGS (4)
  1. CHILDREN'S MOTRIN [Suspect]
     Indication: HEADACHE
     Dosage: ^RECOMMENDED^ AS NEEDED
     Route: 048
  2. CHILDREN'S MOTRIN [Suspect]
     Indication: PYREXIA
     Dosage: ^RECOMMENDED^ AS NEEDED
     Route: 048
  3. CHILDREN'S TYLENOL SUSPENSION [Suspect]
     Route: 065
  4. CHILDREN'S TYLENOL SUSPENSION [Suspect]
     Indication: DRUG USE FOR UNKNOWN INDICATION
     Route: 065

REACTIONS (2)
  - AUTISM [None]
  - PRODUCT QUALITY ISSUE [None]
